FAERS Safety Report 6098593-4 (Version None)
Quarter: 2009Q1

REPORT INFORMATION
  Report Type: 
  Country: None (occurrence: None)
  Receive Date: 20090302
  Receipt Date: 20090214
  Transmission Date: 20090719
  Serious: Yes (Other)
  Sender: FDA-Public Use
  Company Number: US-BAYER-GB-SHR-03-006921

PATIENT
  Age: 43 Year
  Sex: Female

DRUGS (1)
  1. CAMPATH [Suspect]
     Indication: MULTIPLE SCLEROSIS
     Dosage: UNIT DOSE: 20 MG
     Dates: start: 20020707, end: 20020712

REACTIONS (1)
  - GOODPASTURE'S SYNDROME [None]
